FAERS Safety Report 8549335-1 (Version None)
Quarter: 2012Q3

REPORT INFORMATION
  Report Type: 
  Country: None (occurrence: None)
  Receive Date: 20120730
  Receipt Date: 20120720
  Transmission Date: 20120928
  Serious: Yes (Life-Threatening, Hospitalization, Other)
  Sender: FDA-Public Use
  Company Number: DE-UCBSA-061699

PATIENT
  Age: 70 Year
  Sex: Male
  Weight: 75 kg

DRUGS (6)
  1. KEPPRA [Suspect]
     Indication: CONVULSION
     Dates: start: 20120101, end: 20120101
  2. ENOXAPARIN SODIUM [Concomitant]
     Dosage: 0.6 THREE X/PER WEEK
  3. ERGOCALCIFEROL [Concomitant]
     Dosage: DAILY DOSE:1000
     Route: 048
  4. TORSEMIDE [Concomitant]
     Dosage: DAILY DOSE: 100
     Route: 048
  5. RAMIPRIL [Concomitant]
     Dosage: DAILY DOSE: 2.5
     Route: 048
  6. KEPPRA [Suspect]
     Route: 048
     Dates: start: 20120606, end: 20120711

REACTIONS (3)
  - SOMNOLENCE [None]
  - STUPOR [None]
  - CONVULSION [None]
